FAERS Safety Report 17321813 (Version 2)
Quarter: 2023Q1

REPORT INFORMATION
  Report Type: Report from Study
  Country: US (occurrence: US)
  Receive Date: 20200127
  Receipt Date: 20230204
  Transmission Date: 20230418
  Serious: No
  Sender: FDA-Public Use
  Company Number: US-BIOGEN-2019BI00750252

PATIENT
  Age: 65 Year
  Sex: Male

DRUGS (11)
  1. AMPYRA [Suspect]
     Active Substance: DALFAMPRIDINE
     Indication: Gait disturbance
     Dosage: 10 MILLIGRAM, BID
     Route: 048
     Dates: start: 20150924, end: 20160915
  2. PLEGRIDY [Suspect]
     Active Substance: PEGINTERFERON BETA-1A
     Indication: Multiple sclerosis
     Dosage: 63 MICROGRAM, Q 2 WKS
     Route: 065
     Dates: start: 20150602, end: 20150615
  3. PLEGRIDY [Suspect]
     Active Substance: PEGINTERFERON BETA-1A
     Dosage: 94 MICROGRAM, Q 2 WKS
     Route: 065
     Dates: start: 20150616, end: 20150629
  4. PLEGRIDY [Suspect]
     Active Substance: PEGINTERFERON BETA-1A
     Dosage: 125 MICROGRAM, Q 2 WKS
     Route: 065
     Dates: start: 20150630, end: 20170402
  5. PLEGRIDY [Suspect]
     Active Substance: PEGINTERFERON BETA-1A
     Dosage: 125 MICROGRAM, Q 2 WKS
     Route: 065
     Dates: start: 20180509
  6. ARICEPT [Concomitant]
     Active Substance: DONEPEZIL HYDROCHLORIDE
     Indication: Cognitive disorder
     Route: 048
     Dates: start: 20121203
  7. PROZAC [Concomitant]
     Active Substance: FLUOXETINE HYDROCHLORIDE
     Indication: Depression
     Dosage: 20 MILLIGRAM, BID
     Route: 048
     Dates: start: 20150924
  8. NEURONTIN [Concomitant]
     Active Substance: GABAPENTIN
     Indication: Paraesthesia
     Dosage: 200 MILLIGRAM, BID
     Route: 048
     Dates: start: 20150924
  9. NEURONTIN [Concomitant]
     Active Substance: GABAPENTIN
     Indication: Dysaesthesia
  10. WESTCORT [Concomitant]
     Active Substance: HYDROCORTISONE VALERATE
     Indication: Product used for unknown indication
     Dosage: 0.2 PERCENT, PRN
     Route: 061
  11. VALIUM [Concomitant]
     Active Substance: DIAZEPAM
     Indication: Anxiety
     Dosage: 10 MILLIGRAM, QD
     Route: 048
     Dates: start: 20160405, end: 20160405

REACTIONS (3)
  - Myalgia [Recovered/Resolved]
  - Injection site erythema [Recovered/Resolved]
  - Influenza like illness [Recovered/Resolved]

NARRATIVE: CASE EVENT DATE: 20160401
